FAERS Safety Report 11856571 (Version 3)
Quarter: 2016Q1

REPORT INFORMATION
  Report Type: Spontaneous
  Country: US (occurrence: US)
  Receive Date: 20151221
  Receipt Date: 20160108
  Transmission Date: 20160526
  Serious: Yes (Hospitalization, Other)
  Sender: FDA-Public Use
  Company Number: US-PFIZER INC-2015450393

PATIENT
  Age: 45 Year
  Sex: Male
  Weight: 84.82 kg

DRUGS (4)
  1. LYRICA [Suspect]
     Active Substance: PREGABALIN
     Indication: ULNAR NERVE INJURY
     Dosage: 75 MG, UNK
     Dates: start: 201006
  2. NORCO [Concomitant]
     Active Substance: ACETAMINOPHEN\HYDROCODONE BITARTRATE
     Indication: PAIN
     Dosage: [HYDROCODONE BITARTRATE 10MG]/[PARACETAMOL 325MG], EVERY 4-6 HOURS AS NEEDED
     Dates: start: 201510, end: 20151115
  3. LYRICA [Suspect]
     Active Substance: PREGABALIN
     Indication: NEURALGIA
  4. IBUPROFEN. [Concomitant]
     Active Substance: IBUPROFEN
     Indication: PAIN
     Dosage: 800 MG, 2X/DAY
     Dates: start: 2010

REACTIONS (4)
  - Intervertebral disc degeneration [Recovered/Resolved]
  - Neuralgia [Recovering/Resolving]
  - Foot fracture [Not Recovered/Not Resolved]
  - Osteomyelitis [Not Recovered/Not Resolved]

NARRATIVE: CASE EVENT DATE: 201409
